FAERS Safety Report 6886049-8 (Version None)
Quarter: 2010Q3

REPORT INFORMATION
  Report Type: 
  Country: None (occurrence: None)
  Receive Date: 20100729
  Receipt Date: 20080728
  Transmission Date: 20110219
  Serious: Yes (Other)
  Sender: FDA-Public Use
  Company Number: US-PFIZER INC-2008054453

PATIENT
  Sex: Male
  Weight: 84.4 kg

DRUGS (4)
  1. CELEBREX [Suspect]
     Indication: PAIN MANAGEMENT
     Route: 048
     Dates: start: 20080617, end: 20080625
  2. CELEBREX [Suspect]
     Indication: PATELLA FRACTURE
  3. ALPRAZOLAM [Concomitant]
  4. LORTAB [Concomitant]

REACTIONS (6)
  - DRY SKIN [None]
  - DYSPNOEA [None]
  - ERYTHEMA [None]
  - HEPATIC ENZYME INCREASED [None]
  - PRURITUS [None]
  - RASH [None]
